FAERS Safety Report 8948922 (Version 1)
Quarter: 2012Q4

REPORT INFORMATION
  Report Type: 
  Country: US (occurrence: US)
  Receive Date: 20121206
  Receipt Date: 20121206
  Transmission Date: 20130627
  Serious: No
  Sender: FDA-Public Use
  Company Number: US-BIOGENIDEC-2012BI053598

PATIENT
  Sex: Male

DRUGS (1)
  1. AVONEX [Suspect]
     Indication: MULTIPLE SCLEROSIS
     Route: 030
     Dates: start: 20080101

REACTIONS (6)
  - Memory impairment [Recovered/Resolved]
  - Body mass index decreased [Recovered/Resolved]
  - Hypertension [Recovered/Resolved]
  - Heart sounds abnormal [Recovered/Resolved]
  - Mobility decreased [Not Recovered/Not Resolved]
  - Mental impairment [Not Recovered/Not Resolved]
